FAERS Safety Report 6888038-6 (Version None)
Quarter: 2010Q3

REPORT INFORMATION
  Report Type: 
  Country: None (occurrence: None)
  Receive Date: 20100730
  Receipt Date: 20100722
  Transmission Date: 20110219
  Serious: Yes (Other)
  Sender: FDA-Public Use
  Company Number: B0667613A

PATIENT
  Age: 42 Year
  Sex: Male
  Weight: 80 kg

DRUGS (4)
  1. FORMIGRAN [Suspect]
     Indication: PRODUCT USED FOR UNKNOWN INDICATION
     Dosage: 2TAB PER DAY
     Route: 065
     Dates: start: 20100720, end: 20100720
  2. IBUPROFEN [Concomitant]
     Dosage: 10TAB PER DAY
     Route: 065
  3. DICLOFENAC [Concomitant]
     Dosage: 10TAB PER DAY
     Route: 065
  4. FLUOXETINE HCL [Concomitant]
     Dosage: 10TAB PER DAY
     Route: 065

REACTIONS (2)
  - INCORRECT DOSE ADMINISTERED [None]
  - SUICIDE ATTEMPT [None]
